FAERS Safety Report 9034858 (Version 1)
Quarter: 2013Q1

REPORT INFORMATION
  Report Type: Spontaneous
  Country: AU (occurrence: None)
  Receive Date: 20130115
  Receipt Date: 20130115
  Transmission Date: 20140127
  Serious: Yes (Hospitalization)
  Sender: FDA-Public Use
  Company Number: DSA_61822_2013

PATIENT
  Age: 39 Year
  Sex: Female

DRUGS (2)
  1. LORAZEPAM  (LORAZEPAM) [Suspect]
     Indication: SCHIZOPHRENIA
     Dosage: (2 MG,  FREQUENCY UNSPECIFIED)?(UNKNOWN UNTIL NOT CONTINUING)
  2. RISPERIDONE [Concomitant]

REACTIONS (3)
  - Catatonia [None]
  - Acute psychosis [None]
  - Mental status changes [None]
